FAERS Safety Report 7741488-8 (Version None)
Quarter: 2011Q3

REPORT INFORMATION
  Report Type: 
  Country: None (occurrence: None)
  Receive Date: 20110909
  Receipt Date: 20110830
  Transmission Date: 20111222
  Serious: Yes (Hospitalization, Other)
  Sender: FDA-Public Use
  Company Number: US-MERCK-1008USA03529

PATIENT
  Age: 51 Year
  Sex: Female
  Weight: 66 kg

DRUGS (3)
  1. FOSAMAX [Suspect]
     Indication: OSTEOPENIA
     Route: 048
     Dates: start: 19980101, end: 20090101
  2. SYNTHROID [Concomitant]
     Indication: HYPOTHYROIDISM
     Route: 065
     Dates: start: 19800101
  3. FOSAMAX PLUS D [Suspect]
     Route: 048

REACTIONS (39)
  - OSTEONECROSIS OF JAW [None]
  - ANXIETY [None]
  - DRY SKIN [None]
  - ANGIOPATHY [None]
  - POSTMENOPAUSE [None]
  - INCREASED TENDENCY TO BRUISE [None]
  - INSOMNIA [None]
  - AUTOIMMUNE THYROIDITIS [None]
  - THYROID MASS [None]
  - COUGH [None]
  - DRY EYE [None]
  - GINGIVAL DISORDER [None]
  - VENTRICULAR EXTRASYSTOLES [None]
  - BACK PAIN [None]
  - COSTOCHONDRITIS [None]
  - FEELING COLD [None]
  - PERIODONTAL DISEASE [None]
  - HYPERVENTILATION [None]
  - AGITATED DEPRESSION [None]
  - ANAEMIA [None]
  - BREAST PAIN [None]
  - RECTAL HAEMORRHAGE [None]
  - DIVERTICULUM INTESTINAL [None]
  - CONJUNCTIVAL HYPERAEMIA [None]
  - THYROID CYST [None]
  - MUSCULOSKELETAL PAIN [None]
  - HAEMORRHOIDS [None]
  - HEADACHE [None]
  - ENDOMETRIOSIS [None]
  - PALPITATIONS [None]
  - HYPERTHYROIDISM [None]
  - GOITRE [None]
  - IRRITABILITY [None]
  - VENTRICULAR TACHYCARDIA [None]
  - AORTIC VALVE INCOMPETENCE [None]
  - CONSTIPATION [None]
  - UTERINE LEIOMYOMA [None]
  - OVERWEIGHT [None]
  - DYSPHONIA [None]
